FAERS Safety Report 11232957 (Version 1)
Quarter: 2015Q3

REPORT INFORMATION
  Report Type: Spontaneous
  Country: US (occurrence: US)
  Receive Date: 20150701
  Receipt Date: 20150701
  Transmission Date: 20151125
  Serious: No
  Sender: FDA-Public Use
  Company Number: US-009507513-1506USA010736

PATIENT
  Age: 34 Year
  Sex: Female

DRUGS (2)
  1. ESTRACE [Concomitant]
     Active Substance: ESTRADIOL
  2. FOLLISTIM [Suspect]
     Active Substance: FOLLITROPIN
     Indication: INFERTILITY
     Dosage: INJECTION IN BELLY
     Dates: start: 20150612

REACTIONS (1)
  - Anovulatory cycle [Unknown]

NARRATIVE: CASE EVENT DATE: 20150618
